FAERS Safety Report 25616353 (Version 3)
Quarter: 2025Q3

REPORT INFORMATION
  Report Type: Spontaneous
  Country: GB (occurrence: GB)
  Receive Date: 20250729
  Receipt Date: 20250902
  Transmission Date: 20251021
  Serious: Yes (Hospitalization, Other)
  Sender: MYLAN
  Company Number: GB-MYLANLABS-2025M1062905

PATIENT
  Sex: Male

DRUGS (2)
  1. CLOZARIL [Suspect]
     Active Substance: CLOZAPINE
     Indication: Schizophrenia
     Dates: start: 20100625, end: 20250720
  2. CLOZARIL [Suspect]
     Active Substance: CLOZAPINE

REACTIONS (6)
  - Hospitalisation [Unknown]
  - Schizophrenia [Unknown]
  - Seizure [Unknown]
  - Rebound psychosis [Unknown]
  - Patient elopement [Unknown]
  - Malaise [Unknown]
